FAERS Safety Report 9207458 (Version 1)
Quarter: 2013Q2

REPORT INFORMATION
  Report Type: Spontaneous
  Country: US (occurrence: US)
  Receive Date: 20130403
  Receipt Date: 20130403
  Transmission Date: 20140414
  Serious: No
  Sender: FDA-Public Use
  Company Number: US-BAYER-2013-035969

PATIENT
  Age: 84 Year
  Sex: Female
  Weight: 63.49 kg

DRUGS (3)
  1. ALEVE CAPLET [Suspect]
     Indication: BACK PAIN
     Dosage: 1 DF, QD
     Route: 048
     Dates: start: 20130318
  2. ALEVE TABLET [Suspect]
     Dosage: 4 DF, QID
     Route: 048
  3. BAYER EXTRA STRENGTH ASPIRIN [Suspect]
     Indication: BACK PAIN
     Dosage: 2 UNK,QD
     Route: 048

REACTIONS (6)
  - Abdominal pain [Recovered/Resolved]
  - Abdominal discomfort [Recovered/Resolved]
  - Drug ineffective [None]
  - Overdose [None]
  - Pain [None]
  - Drug ineffective [None]
